FAERS Safety Report 9457850 (Version 4)
Quarter: 2013Q3

REPORT INFORMATION
  Report Type: Spontaneous
  Country: GB (occurrence: GB)
  Receive Date: 20130814
  Receipt Date: 20130918
  Transmission Date: 20140515
  Serious: Yes (Hospitalization, Other)
  Sender: FDA-Public Use
  Company Number: GB-AMGEN-GBRSP2013056412

PATIENT
  Age: 77 Year
  Sex: Male
  Weight: 78 kg

DRUGS (3)
  1. NPLATE [Suspect]
     Indication: IMMUNE THROMBOCYTOPENIC PURPURA
     Dosage: 320 MUG, UNK
     Route: 058
     Dates: start: 20130402
  2. IMMUNOGLOBULIN                     /00025201/ [Concomitant]
  3. DIGOXIN [Concomitant]
     Indication: ATRIAL FIBRILLATION
     Dosage: 250 MG, QD
     Route: 048

REACTIONS (8)
  - Platelet count decreased [Not Recovered/Not Resolved]
  - Purpura [Unknown]
  - Blood blister [Unknown]
  - Bone marrow disorder [Unknown]
  - Eosinophil count abnormal [Unknown]
  - Monocyte count abnormal [Unknown]
  - Rash [Unknown]
  - Contusion [Unknown]
